FAERS Safety Report 9774620 (Version 1)
Quarter: 2013Q4

REPORT INFORMATION
  Report Type: Spontaneous
  Country: US (occurrence: None)
  Receive Date: 20131219
  Receipt Date: 20131219
  Transmission Date: 20140711
  Serious: Yes (Other)
  Sender: FDA-Public Use
  Company Number: None

PATIENT
  Age: 30 Year
  Sex: Female

DRUGS (6)
  1. LATUDA [Suspect]
     Indication: BIPOLAR I DISORDER
     Dosage: QHS/BEDTIME
     Route: 048
     Dates: start: 20130904, end: 20131218
  2. LATUDA [Suspect]
     Indication: MAJOR DEPRESSION
     Dosage: QHS/BEDTIME
     Route: 048
     Dates: start: 20130904, end: 20131218
  3. LURASIDONE 80 MG [Concomitant]
  4. VALPROIC ACID 750 MG [Concomitant]
  5. LAMOTRIGINE 50 MG [Concomitant]
  6. TRI-CYCLEN LO [Concomitant]

REACTIONS (1)
  - Tardive dyskinesia [None]
